FAERS Safety Report 6344045-3 (Version None)
Quarter: 2009Q3

REPORT INFORMATION
  Report Type: 
  Country: None (occurrence: None)
  Receive Date: 20090908
  Receipt Date: 20090827
  Transmission Date: 20100115
  Serious: Yes (Other)
  Sender: FDA-Public Use
  Company Number: US-PFIZER INC-2009262007

PATIENT
  Sex: Female
  Weight: 104.32 kg

DRUGS (10)
  1. CELEBREX [Suspect]
     Indication: ARTHRITIS
     Dates: start: 19950101
  2. CELEBREX [Suspect]
     Indication: ARTHRALGIA
  3. MAXZIDE [Concomitant]
  4. LIPITOR [Concomitant]
  5. NEXIUM [Concomitant]
  6. CLONAZEPAM [Concomitant]
  7. TRAZODONE [Concomitant]
  8. EFFEXOR [Concomitant]
  9. SYNTHROID [Concomitant]
  10. VITAMINS [Concomitant]

REACTIONS (3)
  - ABDOMINAL PAIN UPPER [None]
  - GASTRIC BYPASS [None]
  - ULCER [None]
